FAERS Safety Report 25667461 (Version 3)
Quarter: 2025Q3

REPORT INFORMATION
  Report Type: Spontaneous
  Country: JP (occurrence: JP)
  Receive Date: 20250811
  Receipt Date: 20250911
  Transmission Date: 20251020
  Serious: Yes (Other)
  Sender: TAKEDA
  Company Number: JP-TAKEDA-2025TJP007387

PATIENT
  Age: 59 Year
  Sex: Female
  Weight: 37.9 kg

DRUGS (2)
  1. ALUNBRIG [Suspect]
     Active Substance: BRIGATINIB
     Indication: Non-small cell lung cancer metastatic
     Dates: start: 20250410, end: 20250416
  2. ALUNBRIG [Suspect]
     Active Substance: BRIGATINIB
     Dates: start: 20250417, end: 20250608

REACTIONS (1)
  - Therapeutic response decreased [Unknown]
